FAERS Safety Report 25192571 (Version 1)
Quarter: 2025Q2

REPORT INFORMATION
  Report Type: Other
  Country: US (occurrence: US)
  Receive Date: 20250414
  Receipt Date: 20250414
  Transmission Date: 20250716
  Serious: Yes (Hospitalization)
  Sender: ESTEVE
  Company Number: US-Esteve Pharmaceuticals SA-2174796

PATIENT
  Age: 29 Year
  Sex: Female

DRUGS (2)
  1. METOPIRONE [Suspect]
     Active Substance: METYRAPONE
     Indication: Pituitary-dependent Cushing^s syndrome
  2. METOPIRONE [Suspect]
     Active Substance: METYRAPONE

REACTIONS (3)
  - Pre-eclampsia [Recovered/Resolved]
  - Off label use [Unknown]
  - Maternal exposure before pregnancy [Recovered/Resolved]
